FAERS Safety Report 5398536-2 (Version None)
Quarter: 2007Q3

REPORT INFORMATION
  Report Type: 
  Country: None (occurrence: None)
  Receive Date: 20070726
  Receipt Date: 20060705
  Transmission Date: 20080115
  Serious: No
  Sender: FDA-Public Use
  Company Number: US-AMGEN-KDL185307

PATIENT
  Sex: Female
  Weight: 58.6 kg

DRUGS (6)
  1. PROCRIT [Suspect]
     Indication: PRE-EXISTING DISEASE
     Route: 058
  2. RIBAVIRIN [Concomitant]
     Dates: start: 20060201
  3. MAXZIDE [Concomitant]
  4. ATENOLOL [Concomitant]
  5. INTERFERON [Concomitant]
     Route: 058
     Dates: start: 20060201
  6. FLONASE [Concomitant]
     Dates: start: 20060601

REACTIONS (2)
  - ERYTHEMA [None]
  - PRURITUS [None]
